FAERS Safety Report 4626239-8 (Version None)
Quarter: 2005Q2

REPORT INFORMATION
  Report Type: 
  Country: None (occurrence: None)
  Receive Date: 20050331
  Receipt Date: 20040716
  Transmission Date: 20051028
  Serious: Yes (Other)
  Sender: FDA-Public Use
  Company Number: 200413528BCC

PATIENT
  Age: 40 Year
  Sex: Male
  Weight: 79.3795 kg

DRUGS (3)
  1. ALEVE (CAPLET) [Suspect]
     Indication: ARTHRALGIA
     Dosage: 440 MG, BID, ORAL
     Route: 048
     Dates: start: 20040601, end: 20040708
  2. NAPROXEN SODIUM [Suspect]
     Indication: ARTHRALGIA
     Dosage: BID, ORAL
     Route: 048
     Dates: start: 20040601
  3. PRILOSEC [Concomitant]

REACTIONS (5)
  - APHTHOUS STOMATITIS [None]
  - BLOOD PRESSURE INCREASED [None]
  - BLOOD URINE PRESENT [None]
  - DYSURIA [None]
  - HEADACHE [None]
